FAERS Safety Report 10204389 (Version 1)
Quarter: 2014Q2

REPORT INFORMATION
  Report Type: Spontaneous
  Country: US (occurrence: US)
  Receive Date: 20140529
  Receipt Date: 20140529
  Transmission Date: 20141212
  Serious: No
  Sender: FDA-Public Use
  Company Number: US-BAYER-2014-067174

PATIENT
  Age: 58 Year
  Sex: Male

DRUGS (3)
  1. LEVITRA [Suspect]
     Indication: HYPERTENSION
     Dosage: 20 MG, BID
     Route: 048
  2. LEVITRA [Suspect]
     Indication: HYPERTENSION
     Dosage: 10 MG, DAILY
  3. LEVITRA [Suspect]
     Indication: HYPERTENSION
     Dosage: 5 MG, DAILY

REACTIONS (1)
  - Therapeutic response changed [None]
